FAERS Safety Report 18899398 (Version 1)
Quarter: 2021Q1

REPORT INFORMATION
  Report Type: Spontaneous
  Country: US (occurrence: US)
  Receive Date: 20210216
  Receipt Date: 20210216
  Transmission Date: 20210420
  Serious: No
  Sender: FDA-Public Use
  Company Number: US-PFIZER INC-2021116499

PATIENT
  Age: 35 Year
  Sex: Female

DRUGS (4)
  1. OZANIMOD. [Suspect]
     Active Substance: OZANIMOD
     Indication: MULTIPLE SCLEROSIS
     Dosage: 0.92 MG, 1X/DAY
     Route: 048
     Dates: start: 20201107
  2. OZANIMOD. [Suspect]
     Active Substance: OZANIMOD
     Dosage: 0.92 MG, 1X/DAY
     Dates: start: 20210112
  3. OZANIMOD. [Suspect]
     Active Substance: OZANIMOD
     Dosage: 0.92 MG, 1X/DAY
     Route: 048
     Dates: start: 20201114
  4. DEPO?PROVERA [Suspect]
     Active Substance: MEDROXYPROGESTERONE ACETATE
     Indication: HORMONE THERAPY
     Dosage: UNK

REACTIONS (3)
  - Abdominal discomfort [Recovered/Resolved]
  - Vertigo [Recovered/Resolved]
  - Weight increased [Recovered/Resolved]

NARRATIVE: CASE EVENT DATE: 20210110
